FAERS Safety Report 9909607 (Version 1)
Quarter: 2014Q1

REPORT INFORMATION
  Report Type: Spontaneous
  Country: KR (occurrence: KR)
  Receive Date: 20140219
  Receipt Date: 20140219
  Transmission Date: 20141002
  Serious: Yes (Other)
  Sender: FDA-Public Use
  Company Number: KR-009507513-1402KOR008001

PATIENT
  Age: 62 Year
  Sex: Female

DRUGS (2)
  1. PEGINTERFERON ALFA-2B [Suspect]
     Indication: CHRONIC HEPATITIS C
     Dosage: 80 MICROGRAM, QW
  2. RIBAVIRIN [Concomitant]
     Indication: CHRONIC HEPATITIS C
     Dosage: 800 MG, QD
     Route: 048

REACTIONS (2)
  - Thyroidectomy [Unknown]
  - Autoimmune thyroiditis [Unknown]
